FAERS Safety Report 6847836-5 (Version None)
Quarter: 2010Q3

REPORT INFORMATION
  Report Type: 
  Country: None (occurrence: None)
  Receive Date: 20100716
  Receipt Date: 20100708
  Transmission Date: 20110219
  Serious: Yes (Life-Threatening, Hospitalization, Other)
  Sender: FDA-Public Use
  Company Number: US-BAYER-201027437NA

PATIENT
  Age: 8 Year
  Sex: Female

DRUGS (1)
  1. CIPRO [Suspect]
     Indication: PRODUCT USED FOR UNKNOWN INDICATION
     Dosage: 2 TEASPOONFUL 2 TIMES A DAY - CIPRO WAS CLUMPY - IT WAS STORED IN THE REFRIGERATOR
     Route: 048
     Dates: start: 20100614

REACTIONS (1)
  - INFECTION [None]
